FAERS Safety Report 19209501 (Version 3)
Quarter: 2021Q3

REPORT INFORMATION
  Report Type: Report from Study
  Country: None (occurrence: US)
  Receive Date: 20210504
  Receipt Date: 20210729
  Transmission Date: 20211014
  Serious: Yes (Other)
  Sender: FDA-Public Use
  Company Number: US-ABBVIE-21K-163-3819655-00

PATIENT
  Sex: Female
  Weight: 63.56 kg

DRUGS (10)
  1. VITAMIN D [Concomitant]
     Active Substance: VITAMIN D NOS
     Indication: SUPPLEMENTATION THERAPY
  2. KETOPROFEN. [Concomitant]
     Active Substance: KETOPROFEN
     Indication: EYE DISORDER
  3. LORATADINE. [Concomitant]
     Active Substance: LORATADINE
     Indication: HYPERSENSITIVITY
  4. PANTOPRAZOLE [Concomitant]
     Active Substance: PANTOPRAZOLE
     Indication: DYSPHAGIA
  5. OXYBUTYNIN. [Concomitant]
     Active Substance: OXYBUTYNIN CHLORIDE
     Indication: MICTURITION DISORDER
  6. GABAPENTIN. [Concomitant]
     Active Substance: GABAPENTIN
     Indication: NERVOUS SYSTEM DISORDER
  7. COVID?19 VACCINE [Concomitant]
     Indication: COVID-19 IMMUNISATION
     Dosage: MODERNA
     Route: 030
     Dates: start: 20210107, end: 20210107
  8. COVID?19 VACCINE [Concomitant]
     Dosage: MODERNA
     Route: 030
     Dates: start: 20210204, end: 20210204
  9. HUMIRA [Suspect]
     Active Substance: ADALIMUMAB
     Indication: CROHN^S DISEASE
     Dosage: CITRATE FREE
     Route: 058
     Dates: start: 2002
  10. HUMIRA [Suspect]
     Active Substance: ADALIMUMAB
     Dosage: CITRATE FREE
     Route: 058

REACTIONS (17)
  - Skin warm [Recovered/Resolved]
  - Depression [Unknown]
  - Back pain [Not Recovered/Not Resolved]
  - Anaemia [Unknown]
  - Crohn^s disease [Unknown]
  - Neck pain [Not Recovered/Not Resolved]
  - Rash erythematous [Not Recovered/Not Resolved]
  - Tooth infection [Not Recovered/Not Resolved]
  - Menstrual disorder [Unknown]
  - Postmenopausal haemorrhage [Not Recovered/Not Resolved]
  - Rash pruritic [Not Recovered/Not Resolved]
  - Constipation [Recovered/Resolved]
  - Uterine disorder [Not Recovered/Not Resolved]
  - Breast cyst [Recovering/Resolving]
  - Road traffic accident [Recovered/Resolved]
  - Post procedural complication [Unknown]
  - Headache [Unknown]

NARRATIVE: CASE EVENT DATE: 2016
